FAERS Safety Report 7373583-X (Version None)
Quarter: 2011Q1

REPORT INFORMATION
  Report Type: 
  Country: None (occurrence: None)
  Receive Date: 20110307
  Receipt Date: 20110221
  Transmission Date: 20110831
  Serious: Yes (Other)
  Sender: FDA-Public Use
  Company Number: AEDEY201100025

PATIENT
  Age: 71 Year
  Sex: Male

DRUGS (2)
  1. GAMUNEX [Suspect]
     Indication: CHRONIC INFLAMMATORY DEMYELINATING POLYRADICULONEUROPATHY
     Dosage: IV
     Route: 042
     Dates: start: 20090901
  2. SIMVASTATIN [Concomitant]

REACTIONS (1)
  - CORONARY ARTERY DISEASE [None]
